FAERS Safety Report 13929501 (Version 4)
Quarter: 2019Q2

REPORT INFORMATION
  Report Type: Report from Study
  Country: US (occurrence: US)
  Receive Date: 20170901
  Receipt Date: 20190404
  Transmission Date: 20190711
  Serious: Yes (Death, Hospitalization, Other)
  Sender: FDA-Public Use
  Company Number: US-SA-2017SA161671

PATIENT
  Age: 72 Year
  Sex: Male

DRUGS (2)
  1. DUPILUMAB [Suspect]
     Active Substance: DUPILUMAB
     Indication: DERMATITIS ATOPIC
     Dosage: 600 MG, 1X
     Route: 058
     Dates: start: 20170525, end: 20170525
  2. DUPILUMAB [Suspect]
     Active Substance: DUPILUMAB
     Dosage: 300 MG, QOW
     Route: 058
     Dates: start: 20170608, end: 20180801

REACTIONS (12)
  - Pneumonia aspiration [Recovered/Resolved]
  - Oxygen saturation decreased [Recovered/Resolved]
  - Surgery [Unknown]
  - Pneumonia [Recovered/Resolved]
  - Lung neoplasm malignant [Unknown]
  - Eye disorder [Unknown]
  - Death [Fatal]
  - Infection [Unknown]
  - Dermatitis atopic [Unknown]
  - Tracheal fistula [Recovering/Resolving]
  - Laryngectomy [Unknown]
  - Drug ineffective [Unknown]

NARRATIVE: CASE EVENT DATE: 2017
